FAERS Safety Report 10882034 (Version 1)
Quarter: 2015Q1

REPORT INFORMATION
  Report Type: Spontaneous
  Country: US (occurrence: None)
  Receive Date: 20150225
  Receipt Date: 20150225
  Transmission Date: 20150721
  Serious: Yes (Hospitalization, Disabling)
  Sender: FDA-Public Use
  Company Number: None

PATIENT
  Age: 51 Year
  Sex: Male
  Weight: 104.33 kg

DRUGS (5)
  1. JANUVAMET [Concomitant]
  2. LOSARTIN [Concomitant]
     Active Substance: LOSARTAN
  3. LIPITOR [Concomitant]
     Active Substance: ATORVASTATIN CALCIUM
  4. FARXIGA [Suspect]
     Active Substance: DAPAGLIFLOZIN PROPANEDIOL
     Dosage: 1 PILL
     Route: 048
     Dates: start: 20141104, end: 20150221
  5. ACTOS [Concomitant]
     Active Substance: PIOGLITAZONE HYDROCHLORIDE

REACTIONS (5)
  - Fall [None]
  - Head injury [None]
  - Dysphagia [None]
  - Joint injury [None]
  - Loss of consciousness [None]

NARRATIVE: CASE EVENT DATE: 20150221
